FAERS Safety Report 9078652 (Version 1)
Quarter: 2013Q1

REPORT INFORMATION
  Report Type: Spontaneous
  Country: DE (occurrence: DE)
  Receive Date: 20130215
  Receipt Date: 20130215
  Transmission Date: 20140127
  Serious: No
  Sender: FDA-Public Use
  Company Number: DE-009507513-1302DEU005981

PATIENT
  Sex: Female

DRUGS (1)
  1. ECURAL [Suspect]
     Indication: STOMATITIS
     Route: 061

REACTIONS (2)
  - Incorrect route of drug administration [Unknown]
  - Burning sensation [Unknown]
